FAERS Safety Report 4367812-4 (Version None)
Quarter: 2004Q2

REPORT INFORMATION
  Report Type: 
  Country: None (occurrence: None)
  Receive Date: 20040526
  Receipt Date: 20031120
  Transmission Date: 20050107
  Serious: Yes (Hospitalization)
  Sender: FDA-Public Use
  Company Number: USA031153143

PATIENT
  Age: 79 Year
  Sex: Male
  Weight: 73 kg

DRUGS (7)
  1. ZYPREXA [Suspect]
     Indication: DELIRIUM
     Dosage: 5 MG
     Dates: start: 20030901, end: 20031001
  2. INDOCIN [Concomitant]
  3. CELEBREX [Concomitant]
  4. SINEMET [Concomitant]
  5. COGENTIN [Concomitant]
  6. DANTROLENE [Concomitant]
  7. MUSCLE RELAXANT [Concomitant]

REACTIONS (9)
  - APHASIA [None]
  - BEDRIDDEN [None]
  - DIFFICULTY IN WALKING [None]
  - DYSSTASIA [None]
  - INCONTINENCE [None]
  - MUSCLE RIGIDITY [None]
  - NEUROLEPTIC MALIGNANT SYNDROME [None]
  - PARKINSONISM [None]
  - SPEECH DISORDER [None]
